FAERS Safety Report 4470627-X (Version None)
Quarter: 2004Q4

REPORT INFORMATION
  Report Type: 
  Country: None (occurrence: None)
  Receive Date: 20041006
  Receipt Date: 20041006
  Transmission Date: 20050328
  Serious: Yes (Other)
  Sender: FDA-Public Use
  Company Number: None

PATIENT
  Sex: Female
  Weight: 90.7194 kg

DRUGS (1)
  1. LORAZEPAM [Suspect]

REACTIONS (2)
  - ABDOMINAL DISTENSION [None]
  - PRURITUS GENERALISED [None]
